FAERS Safety Report 19218591 (Version 1)
Quarter: 2021Q2

REPORT INFORMATION
  Report Type: Spontaneous
  Country: US (occurrence: US)
  Receive Date: 20210505
  Receipt Date: 20210505
  Transmission Date: 20210717
  Serious: No
  Sender: FDA-Public Use
  Company Number: US-ASTRAZENECA-2021A308363

PATIENT
  Sex: Female
  Weight: 64 kg

DRUGS (5)
  1. CRESTOR [Suspect]
     Active Substance: ROSUVASTATIN CALCIUM
     Route: 048
  2. FASENRA [Suspect]
     Active Substance: BENRALIZUMAB
     Indication: ASTHMA
     Dosage: 30MG/ML EVERY EIGHT WEEKS
     Route: 058
     Dates: start: 201810
  3. SYMBICORT [Suspect]
     Active Substance: BUDESONIDE\FORMOTEROL FUMARATE DIHYDRATE
     Indication: ASTHMA
     Dosage: 160/4.5 MCGS TWO PUFFS TWICE DAILY
     Route: 055
     Dates: start: 201810
  4. SYMBICORT [Suspect]
     Active Substance: BUDESONIDE\FORMOTEROL FUMARATE DIHYDRATE
     Indication: REACTIVE AIRWAYS DYSFUNCTION SYNDROME
     Dosage: 160/4.5 MCGS TWO PUFFS TWICE DAILY
     Route: 055
     Dates: start: 201810
  5. FASENRA [Suspect]
     Active Substance: BENRALIZUMAB
     Indication: REACTIVE AIRWAYS DYSFUNCTION SYNDROME
     Dosage: 30MG/ML EVERY EIGHT WEEKS
     Route: 058
     Dates: start: 201810

REACTIONS (7)
  - Alopecia [Not Recovered/Not Resolved]
  - Ageusia [Unknown]
  - Hair texture abnormal [Not Recovered/Not Resolved]
  - Anosmia [Unknown]
  - Parosmia [Unknown]
  - Drug hypersensitivity [Unknown]
  - Product use issue [Unknown]
